FAERS Safety Report 10518406 (Version 1)
Quarter: 2014Q4

REPORT INFORMATION
  Report Type: Spontaneous
  Country: US (occurrence: None)
  Receive Date: 20141014
  Receipt Date: 20141014
  Transmission Date: 20150528
  Serious: No
  Sender: FDA-Public Use
  Company Number: None

PATIENT
  Age: 72 Year
  Sex: Female
  Weight: 100.9 kg

DRUGS (1)
  1. PRINIVIL [Suspect]
     Active Substance: LISINOPRIL
     Indication: HYPERTENSION
     Dosage: 20 MG ONCE DAILY BY MOUTH
     Route: 048
     Dates: start: 20050517, end: 20140627

REACTIONS (1)
  - Angioedema [None]

NARRATIVE: CASE EVENT DATE: 20140619
